FAERS Safety Report 6622005-2 (Version None)
Quarter: 2010Q1

REPORT INFORMATION
  Report Type: 
  Country: None (occurrence: None)
  Receive Date: 20100309
  Receipt Date: 20100302
  Transmission Date: 20100710
  Serious: Yes (Other)
  Sender: FDA-Public Use
  Company Number: SE-AMGEN-UK373905

PATIENT
  Sex: Female
  Weight: 82 kg

DRUGS (13)
  1. NPLATE [Suspect]
     Indication: IDIOPATHIC THROMBOCYTOPENIC PURPURA
     Route: 058
  2. CORTISONE [Concomitant]
     Route: 065
  3. ATENOLOL [Concomitant]
     Route: 048
  4. PREDNISONE [Concomitant]
     Route: 065
  5. CYANOCOBALAMIN [Concomitant]
     Route: 048
     Dates: start: 20091007
  6. LEVOTHYROXINE SODIUM [Concomitant]
     Route: 048
  7. ANTIHYPERTENSIVE MEDICATION NOS [Concomitant]
     Route: 048
  8. PREDNISOLON [Concomitant]
     Route: 048
     Dates: start: 20091202
  9. OMEPRAZOLE [Concomitant]
     Dates: start: 20091104
  10. FUROSEMIDE [Concomitant]
     Route: 048
     Dates: start: 20091104
  11. BENDROFLUMETHIAZIDE [Concomitant]
     Route: 048
     Dates: start: 20091007
  12. ATENOLOL [Concomitant]
     Route: 048
     Dates: start: 20091007
  13. LEVOTHYROXINE SODIUM [Concomitant]
     Route: 048
     Dates: start: 20091007

REACTIONS (1)
  - DEEP VEIN THROMBOSIS [None]
